FAERS Safety Report 13637221 (Version 1)
Quarter: 2017Q2

REPORT INFORMATION
  Report Type: Spontaneous
  Country: AU (occurrence: AU)
  Receive Date: 20170609
  Receipt Date: 20170609
  Transmission Date: 20170830
  Serious: Yes (Death, Hospitalization, Other)
  Sender: FDA-Public Use
  Company Number: AU-JAZZ-2017-AU-007328

PATIENT
  Age: 5 Year

DRUGS (2)
  1. DEFIBROTIDE (NPB) [Suspect]
     Active Substance: DEFIBROTIDE SODIUM
     Indication: PROPHYLAXIS
     Dosage: PROPHYLAXIS, 22 DAYS
  2. DEFIBROTIDE (NPB) [Suspect]
     Active Substance: DEFIBROTIDE SODIUM
     Indication: VENOOCCLUSIVE DISEASE
     Dosage: TREATMENT OF VOD, 63 DAYS

REACTIONS (3)
  - Disease progression [Fatal]
  - Off label use [Unknown]
  - Multiple organ dysfunction syndrome [Recovered/Resolved]
